FAERS Safety Report 5158185-8 (Version None)
Quarter: 2006Q4

REPORT INFORMATION
  Report Type: 
  Country: None (occurrence: None)
  Receive Date: 20061121
  Receipt Date: 20061121
  Transmission Date: 20070319
  Serious: No
  Sender: FDA-Public Use
  Company Number: None

PATIENT
  Sex: Female
  Weight: 65.7716 kg

DRUGS (1)
  1. VIVAGLOBIN [Suspect]
     Indication: HUMORAL IMMUNE DEFECT
     Dosage: 30 ML   QWEEK   SQ   (FOUR DOSES)
     Route: 058
     Dates: start: 20060621, end: 20060731

REACTIONS (2)
  - MUSCULOSKELETAL PAIN [None]
  - PAIN IN EXTREMITY [None]
